APPROVED DRUG PRODUCT: ROSUVASTATIN CALCIUM
Active Ingredient: ROSUVASTATIN CALCIUM
Strength: EQ 10MG BASE
Dosage Form/Route: TABLET;ORAL
Application: A205587 | Product #002
Applicant: LUPIN INC
Approved: Jul 31, 2017 | RLD: No | RS: No | Type: DISCN